FAERS Safety Report 10420981 (Version 1)
Quarter: 2014Q3

REPORT INFORMATION
  Report Type: Spontaneous
  Country: PT (occurrence: None)
  Receive Date: 20140715
  Receipt Date: 20140715
  Transmission Date: 20150326
  Serious: Yes (Hospitalization, Other)
  Sender: FDA-Public Use
  Company Number: NPIL/SEV/H/2013/66

PATIENT
  Age: 3 Year
  Sex: Female
  Weight: 15 kg

DRUGS (5)
  1. BECLOMETHASONE [Concomitant]
     Active Substance: BECLOMETHASONE
  2. ALBUTEROL. [Concomitant]
     Active Substance: ALBUTEROL
  3. SEVOFLURANE. [Suspect]
     Active Substance: SEVOFLURANE
     Indication: ANAESTHESIA
     Route: 055
  4. RECURONIUM [Concomitant]
  5. NITROUS OXIDE. [Concomitant]
     Active Substance: NITROUS OXIDE

REACTIONS (1)
  - Bronchospasm [None]
